FAERS Safety Report 16460087 (Version 3)
Quarter: 2019Q3

REPORT INFORMATION
  Report Type: Report from Study
  Country: CA (occurrence: CA)
  Receive Date: 20190620
  Receipt Date: 20190710
  Transmission Date: 20191004
  Serious: No
  Sender: FDA-Public Use
  Company Number: CA-BEH-2019103210

PATIENT
  Age: 13 Year
  Sex: Male

DRUGS (3)
  1. HIZENTRA [Suspect]
     Active Substance: HUMAN IMMUNOGLOBULIN G
     Indication: PRIMARY IMMUNODEFICIENCY SYNDROME
     Dosage: 6 GRAM, QW
     Route: 058
  2. HIZENTRA [Suspect]
     Active Substance: HUMAN IMMUNOGLOBULIN G
     Dosage: 5.6 GRAM, QW
     Route: 058
  3. HIZENTRA [Suspect]
     Active Substance: HUMAN IMMUNOGLOBULIN G
     Dosage: 5.6 GRAM, TOT
     Route: 058
     Dates: start: 20190528, end: 20190528

REACTIONS (10)
  - Infusion site pain [Unknown]
  - Pain in extremity [Unknown]
  - Pain in extremity [Unknown]
  - Incorrect dose administered [Unknown]
  - No adverse event [Unknown]
  - Infusion site pain [Recovered/Resolved with Sequelae]
  - Pain [Not Recovered/Not Resolved]
  - Lack of administration site rotation [Unknown]
  - Infusion site swelling [Unknown]
  - Nodule [Recovered/Resolved with Sequelae]

NARRATIVE: CASE EVENT DATE: 20190528
